FAERS Safety Report 9393790 (Version 1)
Quarter: 2013Q3

REPORT INFORMATION
  Report Type: Spontaneous
  Country: KR (occurrence: KR)
  Receive Date: 20130710
  Receipt Date: 20130710
  Transmission Date: 20140515
  Serious: Yes (Hospitalization)
  Sender: FDA-Public Use
  Company Number: KR-BAXTER-2013BAX026278

PATIENT
  Age: 62 Year
  Sex: Female
  Weight: 69 kg

DRUGS (9)
  1. DIANEAL [Suspect]
     Indication: RENAL FAILURE CHRONIC
     Route: 033
     Dates: start: 20120903
  2. DIANEAL [Suspect]
     Indication: PERITONEAL DIALYSIS
  3. DIANEAL [Suspect]
     Indication: PERITONEAL DIALYSIS
  4. DIANEAL [Suspect]
     Indication: PERITONEAL DIALYSIS
  5. ADALAT [Concomitant]
     Indication: HYPERTENSION
     Route: 048
  6. DILATREND [Concomitant]
     Indication: HYPERTENSION
     Route: 048
  7. PRITOR [Concomitant]
     Indication: HYPERTENSION
     Route: 048
  8. LASIX [Concomitant]
     Indication: HYPERTENSION
     Dosage: 3 TABLET
     Route: 048
  9. SIMVASTATIN [Concomitant]
     Indication: HYPERCHOLESTEROLAEMIA
     Route: 048

REACTIONS (1)
  - Azotaemia [Recovered/Resolved]
